FAERS Safety Report 9807561 (Version 1)
Quarter: 2014Q1

REPORT INFORMATION
  Report Type: Spontaneous
  Country: US (occurrence: US)
  Receive Date: 20140110
  Receipt Date: 20140110
  Transmission Date: 20141002
  Serious: No
  Sender: FDA-Public Use
  Company Number: US-SANOFI-AVENTIS-2013SA034076

PATIENT
  Age: 63 Year
  Sex: Male

DRUGS (4)
  1. PLAVIX [Suspect]
     Dosage: STARTED SINCE 12-13 YEARS.
     Route: 048
  2. ACETYLSALICYLIC ACID [Concomitant]
  3. HYZAAR [Concomitant]
  4. MECLIZINE [Concomitant]

REACTIONS (2)
  - Chills [Recovered/Resolved]
  - Nausea [Recovered/Resolved]
